FAERS Safety Report 6618114-4 (Version None)
Quarter: 2010Q1

REPORT INFORMATION
  Report Type: 
  Country: None (occurrence: None)
  Receive Date: 20100308
  Receipt Date: 20100224
  Transmission Date: 20100710
  Serious: Yes (Hospitalization)
  Sender: FDA-Public Use
  Company Number: FR-AMGEN-US393100

PATIENT
  Age: 56 Year
  Sex: Female

DRUGS (3)
  1. ENBREL [Suspect]
     Indication: RHEUMATOID ARTHRITIS
     Dosage: UNKNOWN DOSE THEN 50 MG EVERY 10 DAYS
     Route: 058
     Dates: start: 20070601, end: 20100201
  2. SPECIAFOLDINE [Concomitant]
     Dosage: UNKNOWN
     Route: 065
     Dates: start: 20050101
  3. METHOTREXATE [Concomitant]
     Dosage: 15 MG TOTAL WEEKLY
     Route: 065
     Dates: start: 20050101

REACTIONS (2)
  - CUTANEOUS LUPUS ERYTHEMATOSUS [None]
  - PANNICULITIS [None]
